FAERS Safety Report 4880877-6 (Version None)
Quarter: 2005Q4

REPORT INFORMATION
  Report Type: 
  Country: None (occurrence: None)
  Receive Date: 20051223
  Receipt Date: 20051101
  Transmission Date: 20060501
  Serious: No
  Sender: FDA-Public Use
  Company Number: 05P-163-0316163-00

PATIENT
  Age: 53 Year
  Sex: Female
  Weight: 53.5244 kg

DRUGS (9)
  1. HUMIRA [Suspect]
     Indication: RHEUMATOID ARTHRITIS
     Dosage: 40 MG, 1 IN 2 WK, SUBCUTANEOUS
     Route: 058
     Dates: start: 20040501, end: 20050901
  2. HUMIRA [Suspect]
     Indication: RHEUMATOID ARTHRITIS
     Dosage: 40 MG, 1 IN 2 WK, SUBCUTANEOUS
     Route: 058
     Dates: start: 20051025
  3. TRANSDONE [Concomitant]
  4. METHOTREXATE [Concomitant]
  5. MELOXICAM [Concomitant]
  6. VENLAFAXINE HCL [Concomitant]
  7. ATENOLOL [Concomitant]
  8. FOLIC ACID [Concomitant]
  9. LEKOVIT CA [Concomitant]

REACTIONS (3)
  - ARTHRALGIA [None]
  - FATIGUE [None]
  - JOINT SWELLING [None]
